FAERS Safety Report 19216291 (Version 1)
Quarter: 2021Q2

REPORT INFORMATION
  Report Type: Spontaneous
  Country: US (occurrence: US)
  Receive Date: 20210505
  Receipt Date: 20210505
  Transmission Date: 20210717
  Serious: Yes (Hospitalization, Other)
  Sender: FDA-Public Use
  Company Number: US-SUN PHARMACEUTICAL INDUSTRIES LTD-2021R1-294477

PATIENT
  Age: 10 Month
  Sex: Female

DRUGS (1)
  1. VENLAFAXINE [Suspect]
     Active Substance: VENLAFAXINE HYDROCHLORIDE
     Indication: PRODUCT USED FOR UNKNOWN INDICATION
     Dosage: UNK
     Route: 065

REACTIONS (6)
  - Cardiotoxicity [Recovering/Resolving]
  - Cardiomyopathy [Recovering/Resolving]
  - Ventricular arrhythmia [Recovering/Resolving]
  - Left ventricular dysfunction [Recovering/Resolving]
  - Overdose [Recovering/Resolving]
  - Cardiogenic shock [Recovering/Resolving]
